FAERS Safety Report 10085864 (Version 1)
Quarter: 2014Q2

REPORT INFORMATION
  Report Type: Spontaneous
  Country: ES (occurrence: None)
  Receive Date: 20140416
  Receipt Date: 20140416
  Transmission Date: 20141212
  Serious: Yes (Other)
  Sender: FDA-Public Use
  Company Number: 09-AUR-09783

PATIENT
  Age: 73 Year
  Sex: Female

DRUGS (5)
  1. FLUOXETINE [Suspect]
     Indication: DEPRESSION
  2. LINEZOLID [Suspect]
     Indication: ESCHERICHIA INFECTION
  3. FENTANYL [Suspect]
     Indication: ANALGESIC THERAPY
     Route: 062
  4. TRAMADOL [Suspect]
     Indication: ANALGESIC THERAPY
  5. PARACETAMOL (PARACETAMOL) [Concomitant]

REACTIONS (1)
  - Serotonin syndrome [None]
